FAERS Safety Report 22304292 (Version 1)
Quarter: 2023Q2

REPORT INFORMATION
  Report Type: Spontaneous
  Country: None (occurrence: CA)
  Receive Date: 20230510
  Receipt Date: 20230510
  Transmission Date: 20230722
  Serious: Yes (Hospitalization)
  Sender: FDA-Public Use
  Company Number: CA-B.Braun Medical Inc.-2141329

PATIENT
  Age: 23 Year
  Sex: Female

DRUGS (3)
  1. HEPARIN SODIUM IN DEXTROSE [Suspect]
     Active Substance: HEPARIN SODIUM
     Indication: Injection
     Route: 042
  2. YASMIN [Suspect]
     Active Substance: DROSPIRENONE\ETHINYL ESTRADIOL
  3. ALTEPLASE [Concomitant]
     Active Substance: ALTEPLASE

REACTIONS (4)
  - Gait disturbance [Unknown]
  - Pulmonary embolism [Unknown]
  - Thrombophlebitis [Unknown]
  - Varicose vein [Unknown]
